FAERS Safety Report 12761017 (Version 1)
Quarter: 2016Q3

REPORT INFORMATION
  Report Type: Spontaneous
  Country: JP (occurrence: JP)
  Receive Date: 20160919
  Receipt Date: 20160919
  Transmission Date: 20161109
  Serious: Yes (Life-Threatening)
  Sender: FDA-Public Use
  Company Number: JP-MYLANLABS-2016M1039403

PATIENT

DRUGS (3)
  1. SODIUM CHLORIDE. [Concomitant]
     Active Substance: SODIUM CHLORIDE
     Indication: PRODUCT USED FOR UNKNOWN INDICATION
     Dosage: 0.9%
     Route: 065
  2. REMIFENTANIL [Suspect]
     Active Substance: REMIFENTANIL
     Indication: ABDOMINAL PAIN
     Dosage: 3ML OF 100MICROG/ML; 300MICROG
     Route: 008
  3. DIAZOXIDE [Concomitant]
     Active Substance: DIAZOXIDE
     Indication: INSULINOMA
     Route: 065

REACTIONS (4)
  - Respiratory depression [Recovered/Resolved]
  - Loss of consciousness [Recovered/Resolved]
  - Accidental exposure to product [Recovered/Resolved]
  - Incorrect route of drug administration [Recovered/Resolved]
